FAERS Safety Report 14763504 (Version 1)
Quarter: 2018Q2

REPORT INFORMATION
  Report Type: Spontaneous
  Country: DE (occurrence: DE)
  Receive Date: 20180416
  Receipt Date: 20180416
  Transmission Date: 20180711
  Serious: Yes (Hospitalization)
  Sender: FDA-Public Use
  Company Number: DE-LPDUSPRD-20180555

PATIENT
  Age: 32 Year
  Sex: Female

DRUGS (4)
  1. VITAMIN B12 [Concomitant]
     Active Substance: CYANOCOBALAMIN
     Dosage: UNKNOWN
     Route: 065
  2. FERINJECT [Suspect]
     Active Substance: FERRIC CARBOXYMALTOSE
     Dosage: UNKNOWN
     Route: 041
     Dates: start: 20180320
  3. SPIRULINA SPP. [Concomitant]
     Dosage: UNKNOWN
     Route: 065
  4. VITAMIN D3 [Concomitant]
     Active Substance: CHOLECALCIFEROL
     Dosage: UNKNOWN
     Route: 065

REACTIONS (12)
  - Anxiety [Unknown]
  - Fatigue [Unknown]
  - Chest pain [Unknown]
  - Heart rate increased [Unknown]
  - Panic attack [Unknown]
  - Back pain [Unknown]
  - Chills [Unknown]
  - Palpitations [Unknown]
  - Blood pressure increased [Unknown]
  - Tachycardia [Unknown]
  - Hypertension [Unknown]
  - Dizziness [Unknown]

NARRATIVE: CASE EVENT DATE: 20180320
